FAERS Safety Report 21610775 (Version 2)
Quarter: 2022Q4

REPORT INFORMATION
  Report Type: Spontaneous
  Country: US (occurrence: None)
  Receive Date: 20221117
  Receipt Date: 20221226
  Transmission Date: 20230113
  Serious: Yes (Other)
  Sender: FDA-Public Use
  Company Number: US-ROCHE-3217341

PATIENT
  Age: 79 Year
  Sex: Male
  Weight: 70 kg

DRUGS (2)
  1. ACTIVASE [Suspect]
     Active Substance: ALTEPLASE
     Indication: Cerebrovascular accident
     Dosage: X1 DOSE, 10% BOLUS, REMAINDER 90% INFUSION ;ONGOING: NO
     Route: 042
     Dates: start: 20221110, end: 20221110
  2. ACTIVASE [Suspect]
     Active Substance: ALTEPLASE

REACTIONS (3)
  - Product closure issue [Unknown]
  - Drug administered in wrong device [Unknown]
  - Treatment delayed [Unknown]

NARRATIVE: CASE EVENT DATE: 20221110
